FAERS Safety Report 25608441 (Version 1)
Quarter: 2025Q3

REPORT INFORMATION
  Report Type: Spontaneous
  Country: US (occurrence: US)
  Receive Date: 20250726
  Receipt Date: 20250726
  Transmission Date: 20251021
  Serious: Yes (Life-Threatening, Other)
  Sender: STRIDES
  Company Number: US-MLMSERVICE-20250710-PI572890-00153-1

PATIENT
  Age: 76 Year
  Sex: Female

DRUGS (2)
  1. FLUOXETINE [Suspect]
     Active Substance: FLUOXETINE HYDROCHLORIDE
     Indication: Antidepressant therapy
     Route: 065
  2. PREDNISOLONE [Suspect]
     Active Substance: PREDNISOLONE
     Indication: Lung disorder
     Route: 065

REACTIONS (5)
  - Interstitial lung disease [Unknown]
  - Interstitial lung disease [Unknown]
  - Eosinophilic pneumonia chronic [Unknown]
  - Rebound effect [Unknown]
  - Drug effective for unapproved indication [Unknown]
